FAERS Safety Report 9041379 (Version 1)
Quarter: 2013Q1

REPORT INFORMATION
  Report Type: Spontaneous
  Country: US (occurrence: None)
  Receive Date: 20130125
  Receipt Date: 20130125
  Transmission Date: 20140127
  Serious: Yes (Other)
  Sender: FDA-Public Use
  Company Number: None

PATIENT
  Age: 52 Year
  Sex: Female
  Weight: 104.78 kg

DRUGS (1)
  1. HYDROCODONE [Suspect]
     Dosage: 10/325   Q6H  PRN

REACTIONS (1)
  - Drug ineffective [None]
